FAERS Safety Report 11115812 (Version 2)
Quarter: 2015Q3

REPORT INFORMATION
  Report Type: Spontaneous
  Country: NG (occurrence: NG)
  Receive Date: 20150515
  Receipt Date: 20150810
  Transmission Date: 20151125
  Serious: Yes (Death)
  Sender: FDA-Public Use
  Company Number: NG-PFIZER INC-2015163404

PATIENT
  Age: 78 Year
  Sex: Female
  Weight: 110 kg

DRUGS (5)
  1. FRAGMIN [Suspect]
     Active Substance: DALTEPARIN SODIUM
     Indication: THROMBOSIS PROPHYLAXIS
  2. PENTAZOCINE [Concomitant]
     Active Substance: PENTAZOCINE
     Dosage: 30 MG, 3X/DAY
  3. FLAGYL [Concomitant]
     Active Substance: METRONIDAZOLE\METRONIDAZOLE HYDROCHLORIDE
     Dosage: 500 MG, 3X/DAY
     Route: 042
  4. FRAGMIN [Suspect]
     Active Substance: DALTEPARIN SODIUM
     Indication: PULMONARY EMBOLISM
     Dosage: 5000 IU, DAILY
     Route: 058
     Dates: start: 20150509
  5. CEFTRIAXONE. [Concomitant]
     Active Substance: CEFTRIAXONE
     Dosage: 1 G, 1X/DAY
     Route: 030

REACTIONS (4)
  - Chest pain [Fatal]
  - Cough [Fatal]
  - Respiratory distress [Fatal]
  - Drug ineffective [Fatal]

NARRATIVE: CASE EVENT DATE: 20150509
